FAERS Safety Report 23955952 (Version 2)
Quarter: 2024Q3

REPORT INFORMATION
  Report Type: Report from Study
  Country: US (occurrence: US)
  Receive Date: 20240610
  Receipt Date: 20240712
  Transmission Date: 20241017
  Serious: No
  Sender: BIOVITRUM
  Company Number: US-BIOVITRUM-2024-US-008197

PATIENT
  Age: 81 Year
  Sex: Female

DRUGS (1)
  1. KINERET [Suspect]
     Active Substance: ANAKINRA
     Indication: Rheumatoid arthritis
     Dosage: DAILY
     Route: 058
     Dates: start: 20231028

REACTIONS (10)
  - Pain [Unknown]
  - Fall [Unknown]
  - Drug effect less than expected [Unknown]
  - Hypoaesthesia [Unknown]
  - Stress [Unknown]
  - Urinary incontinence [Unknown]
  - Loss of personal independence in daily activities [Unknown]
  - Depressed mood [Unknown]
  - Emotional disorder [Unknown]
  - Musculoskeletal stiffness [Unknown]
